FAERS Safety Report 25637870 (Version 1)
Quarter: 2025Q3

REPORT INFORMATION
  Report Type: Spontaneous
  Country: US (occurrence: US)
  Receive Date: 20250804
  Receipt Date: 20250804
  Transmission Date: 20251021
  Serious: No
  Sender: ABBVIE
  Company Number: US-ABBVIE-6394386

PATIENT
  Age: 26 Year
  Sex: Female

DRUGS (1)
  1. BOTOX [Suspect]
     Active Substance: ONABOTULINUMTOXINA
     Indication: Hypertonic bladder
     Route: 043
     Dates: start: 20250711, end: 20250711

REACTIONS (3)
  - Nausea [Unknown]
  - Dysphagia [Unknown]
  - Vomiting [Unknown]

NARRATIVE: CASE EVENT DATE: 20250723
